FAERS Safety Report 12657997 (Version 1)
Quarter: 2016Q3

REPORT INFORMATION
  Report Type: Spontaneous
  Country: IT (occurrence: IT)
  Receive Date: 20160816
  Receipt Date: 20160816
  Transmission Date: 20161109
  Serious: Yes (Other)
  Sender: FDA-Public Use
  Company Number: IT-SA-2016SA147029

PATIENT
  Age: 61 Year
  Sex: Female

DRUGS (1)
  1. CAPRELSA [Suspect]
     Active Substance: VANDETANIB
     Indication: MEDULLARY THYROID CANCER
     Route: 048
     Dates: start: 20160201, end: 20160301

REACTIONS (4)
  - Electrocardiogram ST segment depression [Recovered/Resolved with Sequelae]
  - Rash [Recovering/Resolving]
  - Electrocardiogram QT prolonged [Recovered/Resolved with Sequelae]
  - Hypertension [Recovering/Resolving]

NARRATIVE: CASE EVENT DATE: 20160222
